FAERS Safety Report 13864694 (Version 1)
Quarter: 2017Q3

REPORT INFORMATION
  Report Type: Spontaneous
  Country: US (occurrence: US)
  Receive Date: 20170813
  Receipt Date: 20170813
  Transmission Date: 20171127
  Serious: Yes (Other)
  Sender: FDA-Public Use
  Company Number: None

PATIENT
  Age: 39 Year
  Sex: Female
  Weight: 100.5 kg

DRUGS (1)
  1. TOPIRAMATE. [Suspect]
     Active Substance: TOPIRAMATE
     Indication: HEADACHE
     Route: 048

REACTIONS (6)
  - Angle closure glaucoma [None]
  - Pain [None]
  - Myalgia [None]
  - Vision blurred [None]
  - Headache [None]
  - Drug withdrawal syndrome [None]

NARRATIVE: CASE EVENT DATE: 20170812
